FAERS Safety Report 9124346 (Version 1)
Quarter: 2013Q1

REPORT INFORMATION
  Report Type: Spontaneous
  Country: FR (occurrence: FR)
  Receive Date: 20130116
  Receipt Date: 20130116
  Transmission Date: 20140127
  Serious: Yes (Hospitalization)
  Sender: FDA-Public Use
  Company Number: FR-009507513-1301FRA003762

PATIENT
  Sex: Female

DRUGS (4)
  1. HYZAAR [Suspect]
     Indication: HYPERTENSION
     Dosage: UNK
     Route: 048
     Dates: end: 201211
  2. PREVISCAN [Concomitant]
  3. TAHOR [Concomitant]
  4. DAFALGAN [Concomitant]

REACTIONS (2)
  - Fall [Unknown]
  - Hypotension [Unknown]
